FAERS Safety Report 11214860 (Version 1)
Quarter: 2015Q2

REPORT INFORMATION
  Report Type: Spontaneous
  Country: US (occurrence: US)
  Receive Date: 20150624
  Receipt Date: 20150624
  Transmission Date: 20150821
  Serious: No
  Sender: FDA-Public Use
  Company Number: US-BIOGENIDEC-2015BI078367

PATIENT
  Age: 54 Year
  Sex: Female

DRUGS (19)
  1. TIZIANIDINE [Concomitant]
  2. COLACE [Concomitant]
     Active Substance: DOCUSATE SODIUM
  3. SYNTHROID [Concomitant]
     Active Substance: LEVOTHYROXINE SODIUM
  4. VITAMIN D2 (VITAMIN D2) [Concomitant]
  5. TECFIDERA [Suspect]
     Active Substance: DIMETHYL FUMARATE
     Indication: MULTIPLE SCLEROSIS
     Route: 048
     Dates: start: 20140611, end: 20140904
  6. LAMICTAL [Concomitant]
     Active Substance: LAMOTRIGINE
  7. CRESTOR [Concomitant]
     Active Substance: ROSUVASTATIN CALCIUM
  8. AMPYRA [Concomitant]
     Active Substance: DALFAMPRIDINE
     Indication: MULTIPLE SCLEROSIS
     Route: 048
     Dates: start: 201312
  9. KLONOPIN [Concomitant]
     Active Substance: CLONAZEPAM
  10. RESTASIS (CICLOSPORIN) [Concomitant]
  11. PHENERGAN [Concomitant]
     Active Substance: PROMETHAZINE HYDROCHLORIDE
  12. BACLOFEN (BACLOFEN) [Concomitant]
     Active Substance: BACLOFEN
  13. TOPIRAMATE (TOPIRAMATE) [Concomitant]
     Active Substance: TOPIRAMATE
  14. SENOKOT (SENNA ALEXANDRINA) [Concomitant]
  15. DILAUDID [Concomitant]
     Active Substance: HYDROMORPHONE HYDROCHLORIDE
  16. CALCIUM (CALCIUM) [Concomitant]
     Active Substance: CALCIUM
  17. GABAPENTIN (GABAPENTIN) [Concomitant]
     Active Substance: GABAPENTIN
  18. LIDOCAINE (LIDOCAINE) [Concomitant]
     Active Substance: LIDOCAINE
  19. VITAMIN B12 NOS (VITAMIN B12 NOS) [Concomitant]

REACTIONS (6)
  - General symptom [Recovered/Resolved]
  - Adverse event [Unknown]
  - Malaise [Unknown]
  - Mobility decreased [Unknown]
  - Nausea [Recovered/Resolved]
  - Dizziness [Not Recovered/Not Resolved]

NARRATIVE: CASE EVENT DATE: 20140611
